FAERS Safety Report 14091787 (Version 1)
Quarter: 2017Q4

REPORT INFORMATION
  Report Type: Spontaneous
  Country: US (occurrence: US)
  Receive Date: 20171016
  Receipt Date: 20171016
  Transmission Date: 20180321
  Serious: No
  Sender: FDA-Public Use
  Company Number: US-PFIZER INC-2017441104

PATIENT
  Age: 62 Year
  Sex: Female
  Weight: 70.31 kg

DRUGS (3)
  1. EUCRISA [Suspect]
     Active Substance: CRISABOROLE
     Indication: ECZEMA
     Dosage: A THIN LAYER APPLIED, TWICE A DAY
     Dates: start: 20171003, end: 20171008
  2. VENTOLIN [Concomitant]
     Active Substance: ALBUTEROL SULFATE
     Indication: EMPHYSEMA
     Dosage: 2 INHALES, 3X/DAY
  3. PRILOSEC [Concomitant]
     Active Substance: OMEPRAZOLE MAGNESIUM
     Indication: ULCER HAEMORRHAGE
     Dosage: 1 DF, DAILY
     Route: 048
     Dates: start: 2014

REACTIONS (9)
  - Condition aggravated [Not Recovered/Not Resolved]
  - Burning sensation [Recovering/Resolving]
  - Skin disorder [Recovering/Resolving]
  - Eczema [Not Recovered/Not Resolved]
  - Drug hypersensitivity [Unknown]
  - Pruritus [Recovered/Resolved]
  - Blister [Recovering/Resolving]
  - Erythema [Recovered/Resolved]
  - Drug ineffective [Not Recovered/Not Resolved]

NARRATIVE: CASE EVENT DATE: 201710
